FAERS Safety Report 23658122 (Version 1)
Quarter: 2024Q1

REPORT INFORMATION
  Report Type: Spontaneous
  Country: US (occurrence: None)
  Receive Date: 20240320
  Receipt Date: 20240320
  Transmission Date: 20240410
  Serious: No
  Sender: FDA-Public Use
  Company Number: None

PATIENT
  Age: 34 Year
  Sex: Female

DRUGS (1)
  1. STRENSIQ [Suspect]
     Active Substance: ASFOTASE ALFA
     Indication: Phosphorus metabolism disorder
     Dosage: FREQUENCY : DAILY;?
     Dates: start: 20240305, end: 20240319

REACTIONS (12)
  - Hypersensitivity [None]
  - Vomiting [None]
  - Nausea [None]
  - Loss of consciousness [None]
  - Throat irritation [None]
  - Muscle disorder [None]
  - Injection site rash [None]
  - Increased upper airway secretion [None]
  - Refusal of treatment by patient [None]
  - Malaise [None]
  - Fatigue [None]
  - Therapy cessation [None]

NARRATIVE: CASE EVENT DATE: 20240320
